FAERS Safety Report 8062765-X (Version None)
Quarter: 2011Q4

REPORT INFORMATION
  Report Type: 
  Country: None (occurrence: None)
  Receive Date: 20111220
  Receipt Date: 20110614
  Transmission Date: 20120403
  Serious: Yes (Hospitalization)
  Sender: FDA-Public Use
  Company Number: PHHY2011US52928

PATIENT
  Age: 44 Year
  Sex: Female

DRUGS (3)
  1. TRAZODONE HCL [Suspect]
  2. MYFORTIC [Suspect]
     Indication: PANCREAS TRANSPLANT
     Dosage: 360 MG, BID, ORAL, 720 MG, BID, ORAL
     Route: 048
     Dates: start: 20110201
  3. MYFORTIC [Suspect]
     Indication: RENAL TRANSPLANT
     Dosage: 360 MG, BID, ORAL, 720 MG, BID, ORAL
     Route: 048
     Dates: start: 20110201

REACTIONS (2)
  - PANCREAS TRANSPLANT REJECTION [None]
  - PANCREATITIS [None]
